FAERS Safety Report 4294101-9 (Version None)
Quarter: 2004Q1

REPORT INFORMATION
  Report Type: 
  Country: None (occurrence: None)
  Receive Date: 20040212
  Receipt Date: 20040212
  Transmission Date: 20041129
  Serious: Yes (Hospitalization)
  Sender: FDA-Public Use
  Company Number: None

PATIENT
  Age: 19 Year
  Sex: Male

DRUGS (1)
  1. PROPOFOL [Suspect]
     Dates: start: 20031218, end: 20031227

REACTIONS (1)
  - RHABDOMYOLYSIS [None]
